FAERS Safety Report 9274953 (Version 1)
Quarter: 2013Q1

REPORT INFORMATION
  Report Type: Spontaneous
  Country: US (occurrence: None)
  Receive Date: 20130219
  Receipt Date: 20130219
  Transmission Date: 20140127
  Serious: Yes (Hospitalization)
  Sender: FDA-Public Use
  Company Number: SYM-2013-00433

PATIENT
  Age: 44 Year
  Sex: Female

DRUGS (1)
  1. XENAZINE (TETRABENAZINE)(TETRABENAZINE) [Suspect]
     Indication: HUNTINGTON^S DISEASE
     Route: 048

REACTIONS (2)
  - Fall [None]
  - Dysuria [None]
